FAERS Safety Report 9779022 (Version 5)
Quarter: 2014Q3

REPORT INFORMATION
  Report Type: Report from Study
  Country: DE (occurrence: DE)
  Receive Date: 20131223
  Receipt Date: 20140701
  Transmission Date: 20150326
  Serious: Yes (Death)
  Sender: FDA-Public Use
  Company Number: DE-BRISTOL-MYERS SQUIBB COMPANY-19919695

PATIENT
  Age: 62 Year
  Sex: Male
  Weight: 92 kg

DRUGS (13)
  1. CITALOPRAM [Concomitant]
     Active Substance: CITALOPRAM HYDROBROMIDE
     Indication: DEPRESSION
     Dosage: 1DF= 10 NO UNITS
     Dates: start: 20131202, end: 20131208
  2. FLUOROURACIL. [Suspect]
     Active Substance: FLUOROURACIL
     Indication: HEAD AND NECK CANCER
     Dosage: 1ST DOSE:1000MG/M2,RECENT DOSE OF FLUOROURACIL  WAS GIVEN ON 20NOV13,DAYS 1-4 OF 21DAY CYCLE
     Route: 042
     Dates: start: 20130717
  3. CIPROBAY [Concomitant]
     Active Substance: CIPROFLOXACIN
     Dosage: 500MG,DAY4 UNTIL DAY14
     Route: 042
  4. ONDANSETRON [Concomitant]
     Active Substance: ONDANSETRON
     Dosage: EVENING,100ML NACL0.9%+8MG ONDANSETRON: IV,30MIN BEFORE ADM OF STUDY DRUGS
     Route: 048
  5. MANNITOL. [Concomitant]
     Active Substance: MANNITOL
     Dosage: MANNITOL 20,INF,1HR AFTR INF OF ERBITUX
     Route: 042
  6. CISPLATIN FOR INJ [Suspect]
     Active Substance: CISPLATIN
     Indication: HEAD AND NECK CANCER
     Dosage: 1ST INF:100MG/M2,RECENT DOSE OF CISPLATIN WAS GIVEN ON 20NOV13
     Route: 042
     Dates: start: 20130717
  7. CETUXIMAB [Suspect]
     Active Substance: CETUXIMAB
     Indication: HEAD AND NECK CANCER
     Dosage: 1ST INF:400MG/M2,6CY OF CETUXIMAB ON 20NOV13?RECENT DOSE OF CETUXIMAB WAS GIVEN ON 04DEC13,
     Route: 042
     Dates: start: 20130717
  8. EMEND [Concomitant]
     Active Substance: APREPITANT
     Dosage: 125MG,DAY1;80MG,DAY2+3
     Route: 048
  9. TAVOR [Concomitant]
     Active Substance: LORAZEPAM
     Indication: INSOMNIA
     Dates: start: 20131201, end: 20131208
  10. TAVEGIL [Concomitant]
     Active Substance: CLEMASTINE FUMARATE
     Dosage: 30MIN BEFORE ADM STUDY DRUGS
     Route: 042
  11. DEXAMETHASONE. [Concomitant]
     Active Substance: DEXAMETHASONE
     Dosage: EVENING BEFORE ADM OF STUDY DRUGS,DAY2 UNTIL DAY4;IV:30MIN BEFORE ADM OF STUDY DRUGS
     Route: 048
  12. RANITIDINE [Concomitant]
     Active Substance: RANITIDINE\RANITIDINE HYDROCHLORIDE
     Dosage: 30MIN BEFORE ADM OF STUDY DRUGS
  13. DUROGESIC [Concomitant]
     Active Substance: FENTANYL
     Indication: PAIN

REACTIONS (1)
  - Neutropenic sepsis [Fatal]

NARRATIVE: CASE EVENT DATE: 20131208
